FAERS Safety Report 14104861 (Version 2)
Quarter: 2017Q4

REPORT INFORMATION
  Report Type: Spontaneous
  Country: DK (occurrence: DK)
  Receive Date: 20171018
  Receipt Date: 20171019
  Transmission Date: 20180321
  Serious: Yes (Death, Hospitalization)
  Sender: FDA-Public Use
  Company Number: DK-JNJFOC-20171005122

PATIENT
  Age: 46 Year
  Sex: Male

DRUGS (5)
  1. SERENASE [Suspect]
     Active Substance: HALOPERIDOL
     Indication: DELIRIUM
     Route: 065
     Dates: start: 201706, end: 201707
  2. ZYPREXA [Suspect]
     Active Substance: OLANZAPINE
     Indication: DELIRIUM
     Route: 065
     Dates: start: 201706
  3. TREVICTA [Suspect]
     Active Substance: PALIPERIDONE PALMITATE
     Indication: SCHIZOPHRENIA
     Route: 030
     Dates: start: 20170818
  4. TREVICTA [Suspect]
     Active Substance: PALIPERIDONE PALMITATE
     Indication: SCHIZOPHRENIA
     Route: 030
     Dates: start: 20170524
  5. ZYPREXA [Suspect]
     Active Substance: OLANZAPINE
     Indication: DELIRIUM
     Route: 065
     Dates: start: 20170725, end: 20170729

REACTIONS (15)
  - Pneumothorax [Unknown]
  - Sympathicotonia [Unknown]
  - Septic shock [Unknown]
  - Tachycardia [Unknown]
  - Tremor [Unknown]
  - Death [Fatal]
  - Altered state of consciousness [Unknown]
  - Extra dose administered [Unknown]
  - Erysipelas [Unknown]
  - Hypertonia [Unknown]
  - Off label use [Unknown]
  - Brain injury [Unknown]
  - Neuroleptic malignant syndrome [Recovering/Resolving]
  - Hypertension [Unknown]
  - Extrapyramidal disorder [Unknown]

NARRATIVE: CASE EVENT DATE: 20170612
